FAERS Safety Report 9198654 (Version 3)
Quarter: 2014Q2

REPORT INFORMATION
  Report Type: Report from Study
  Country: CA (occurrence: CA)
  Receive Date: 20130329
  Receipt Date: 20140527
  Transmission Date: 20141212
  Serious: Yes (Other)
  Sender: FDA-Public Use
  Company Number: CA-JNJFOC-20130315569

PATIENT
  Age: 38 Year
  Sex: Male
  Weight: 80 kg

DRUGS (4)
  1. REMICADE [Suspect]
     Indication: CROHN^S DISEASE
     Dosage: AT WEEKS 0,2 AND 6. REINDUCTION AT 2 WEEK.????APPROXIMATE TOTAL NUMBER OF INFUSIONS WERE 8.
     Route: 042
     Dates: start: 20130304
  2. REMICADE [Suspect]
     Indication: CROHN^S DISEASE
     Route: 042
     Dates: start: 20120107
  3. IMURAN [Suspect]
     Indication: IMMUNOSUPPRESSION
     Route: 065
  4. IMODIUM [Concomitant]
     Indication: DIARRHOEA
     Route: 065

REACTIONS (3)
  - Fistula [Recovered/Resolved]
  - Postoperative abscess [Not Recovered/Not Resolved]
  - Abscess intestinal [Recovered/Resolved]
